FAERS Safety Report 5366509-1 (Version None)
Quarter: 2007Q2

REPORT INFORMATION
  Report Type: 
  Country: None (occurrence: None)
  Receive Date: 20070622
  Receipt Date: 20070613
  Transmission Date: 20071010
  Serious: Yes (Hospitalization)
  Sender: FDA-Public Use
  Company Number: US-AMGEN-STX223444

PATIENT
  Sex: Male

DRUGS (8)
  1. ENBREL [Suspect]
     Indication: PSORIASIS
     Route: 058
     Dates: start: 20051016
  2. COSOPT [Concomitant]
  3. LUMIGAN [Concomitant]
  4. LIPITOR [Concomitant]
  5. ENALAPRIL [Concomitant]
  6. FOSAMAX [Concomitant]
  7. ULTRAVATE [Concomitant]
  8. DOVONEX [Concomitant]

REACTIONS (3)
  - CHRONIC INFLAMMATORY DEMYELINATING POLYRADICULONEUROPATHY [None]
  - DIABETES MELLITUS [None]
  - RED BLOOD CELL COUNT DECREASED [None]
